FAERS Safety Report 7581351-9 (Version None)
Quarter: 2011Q2

REPORT INFORMATION
  Report Type: 
  Country: None (occurrence: None)
  Receive Date: 20110629
  Receipt Date: 20110627
  Transmission Date: 20111010
  Serious: Yes (Hospitalization)
  Sender: FDA-Public Use
  Company Number: US-PFIZER INC-2011142520

PATIENT
  Age: 76 Year
  Sex: Female

DRUGS (4)
  1. OXYCODONE AND ACETAMINOPHEN [Concomitant]
     Indication: PAIN IN EXTREMITY
     Dosage: 5 MG/325 MG EVERY 6 HOURS AS NEEDED
  2. GABAPENTIN [Suspect]
     Indication: DIABETIC NEUROPATHY
     Dosage: 1200 MG, EVERY 8 HOURS
  3. GLYBURIDE [Concomitant]
     Dosage: 10 MG, 2X/DAY
  4. ZOLPIDEM [Concomitant]
     Dosage: 5 MG, AT BEDTIME

REACTIONS (2)
  - DRUG WITHDRAWAL SYNDROME [None]
  - AKATHISIA [None]
